FAERS Safety Report 6343438-8 (Version None)
Quarter: 2009Q3

REPORT INFORMATION
  Report Type: 
  Country: None (occurrence: None)
  Receive Date: 20090908
  Receipt Date: 20090904
  Transmission Date: 20100115
  Serious: Yes (Life-Threatening, Hospitalization)
  Sender: FDA-Public Use
  Company Number: PHHY2009GB11977

PATIENT
  Sex: Male

DRUGS (6)
  1. CLOZARIL [Suspect]
     Indication: SCHIZOPHRENIA
     Dosage: 400 MG, UNK
     Route: 048
     Dates: start: 20011218
  2. VALPROIC ACID [Concomitant]
     Dosage: 1000 MG, UNK
     Route: 048
  3. HYDROXYZINE [Concomitant]
     Dosage: 25 MG, UNK
     Route: 048
  4. CITALOPRAM HYDROBROMIDE [Concomitant]
     Dosage: 20 MG, UNK
     Route: 048
  5. ESOMEPRAZOLE [Concomitant]
     Dosage: 40 MG, UNK
     Route: 048
  6. FRUSEMIDE [Concomitant]
     Dosage: 250 MG, UNK
     Route: 048

REACTIONS (13)
  - ANXIETY [None]
  - DIALYSIS [None]
  - HAEMATOCRIT DECREASED [None]
  - HAEMOGLOBIN DECREASED [None]
  - MALAISE [None]
  - MEAN CELL HAEMOGLOBIN INCREASED [None]
  - MENTAL DISORDER [None]
  - NEUTROPENIA [None]
  - NEUTROPHIL COUNT DECREASED [None]
  - OVERDOSE [None]
  - PAIN [None]
  - PERITONITIS [None]
  - RED BLOOD CELL COUNT DECREASED [None]
